FAERS Safety Report 9819490 (Version 1)
Quarter: 2014Q1

REPORT INFORMATION
  Report Type: Spontaneous
  Country: US (occurrence: US)
  Receive Date: 20140115
  Receipt Date: 20140115
  Transmission Date: 20141002
  Serious: No
  Sender: FDA-Public Use
  Company Number: US-009507513-1401USA003170

PATIENT
  Age: 51 Year
  Sex: Male

DRUGS (2)
  1. PROVENTIL [Suspect]
     Dosage: 1 DF, TID
     Route: 055
     Dates: start: 20140106
  2. ANTIMICROBIAL (UNSPECIFIED) [Concomitant]
     Indication: PNEUMONIA

REACTIONS (3)
  - Drug dose omission [Unknown]
  - Product quality issue [Unknown]
  - Wheezing [Unknown]
